FAERS Safety Report 9936978 (Version 1)
Quarter: 2014Q1

REPORT INFORMATION
  Report Type: Spontaneous
  Country: US (occurrence: None)
  Receive Date: 20140115
  Receipt Date: 20140115
  Transmission Date: 20141002
  Serious: No
  Sender: FDA-Public Use
  Company Number: 2013US002643

PATIENT
  Age: 70 Year
  Sex: Female
  Weight: 51 kg

DRUGS (4)
  1. ICLUSIG (PONATINIB) TABLET, 15MG [Suspect]
     Indication: CHRONIC MYELOID LEUKAEMIA
     Route: 048
  2. GABAPENTIN (GABAPENTIN) [Concomitant]
  3. REMERON (MIRTAZAPINE) [Concomitant]
  4. COMPAZINE (PROCHLORPERAZINE EDISYLATE) [Concomitant]

REACTIONS (3)
  - Abdominal distension [None]
  - Dyspnoea [None]
  - Fatigue [None]
